FAERS Safety Report 5796727-X (Version None)
Quarter: 2008Q3

REPORT INFORMATION
  Report Type: 
  Country: None (occurrence: None)
  Receive Date: 20080701
  Receipt Date: 20080620
  Transmission Date: 20090109
  Serious: No
  Sender: FDA-Public Use
  Company Number: JP-MERCK-0806USA01117

PATIENT
  Age: 52 Year
  Sex: Female
  Weight: 54 kg

DRUGS (6)
  1. FOSAMAX [Suspect]
     Indication: OSTEOPOROSIS
     Route: 048
     Dates: start: 20071001, end: 20071101
  2. PREDNISOLONE [Concomitant]
     Indication: MYASTHENIA GRAVIS
     Route: 048
  3. WARFARIN POTASSIUM [Concomitant]
     Route: 048
  4. PEPCID [Concomitant]
     Route: 048
  5. ASPIRIN [Concomitant]
     Route: 048
  6. ALFAROL [Concomitant]
     Route: 048

REACTIONS (3)
  - BONE PAIN [None]
  - C-REACTIVE PROTEIN INCREASED [None]
  - PYREXIA [None]
